FAERS Safety Report 25911896 (Version 1)
Quarter: 2025Q4

REPORT INFORMATION
  Report Type: Spontaneous
  Country: JP (occurrence: JP)
  Receive Date: 20251013
  Receipt Date: 20251013
  Transmission Date: 20260118
  Serious: Yes (Hospitalization, Other)
  Sender: MERCK SHARP & DOHME LLC
  Company Number: JP-009507513-2337442

PATIENT
  Age: 64 Year
  Sex: Male

DRUGS (3)
  1. KEYTRUDA [Suspect]
     Active Substance: PEMBROLIZUMAB
     Indication: Non-small cell lung cancer stage II
     Route: 041
     Dates: start: 20250226, end: 20250430
  2. PEMETREXED [Concomitant]
     Active Substance: PEMETREXED
     Dates: start: 20250226, end: 20250430
  3. CISPLATIN [Concomitant]
     Active Substance: CISPLATIN
     Dates: start: 20250226, end: 20250430

REACTIONS (2)
  - Pulmonary toxicity [Recovered/Resolved]
  - Hypoxia [Unknown]

NARRATIVE: CASE EVENT DATE: 20250620
